FAERS Safety Report 8133617-1 (Version None)
Quarter: 2012Q1

REPORT INFORMATION
  Report Type: 
  Country: None (occurrence: None)
  Receive Date: 20120213
  Receipt Date: 20120110
  Transmission Date: 20120608
  Serious: Yes (Hospitalization)
  Sender: FDA-Public Use
  Company Number: JP-ROCHE-1038521

PATIENT
  Age: 70 Year
  Sex: Male
  Weight: 52.4 kg

DRUGS (14)
  1. MABTHERA [Suspect]
     Indication: NON-HODGKIN'S LYMPHOMA
     Route: 042
     Dates: start: 20111101
  2. BENDAMUSTINE [Suspect]
     Indication: NON-HODGKIN'S LYMPHOMA
     Route: 042
     Dates: start: 20111101
  3. DEPAS [Concomitant]
     Dates: start: 20111006
  4. ZOVIRAX [Concomitant]
     Dates: start: 20111101
  5. SULFAMETHOXAZOLE [Concomitant]
     Dates: start: 20111101
  6. PRIMPERAN TAB [Concomitant]
     Dates: start: 20111228, end: 20111228
  7. SENNOSIDE A+B [Concomitant]
     Dates: start: 20111108
  8. DEXAMETHASONE SODIUM PHOSPHATE [Concomitant]
     Dates: start: 20111227, end: 20111228
  9. GRANISETRON [Suspect]
     Route: 042
  10. VFEND [Concomitant]
     Dates: start: 20111105
  11. LANSOPRAZOLE [Concomitant]
     Dates: start: 20111101
  12. MAGNESIUM SULFATE [Concomitant]
     Dates: start: 20111206
  13. HOCHU-EKKI-TO [Concomitant]
     Dates: start: 20111012
  14. FLUNITRAZEPAM [Concomitant]
     Dates: start: 20111006

REACTIONS (1)
  - ILEUS [None]
